FAERS Safety Report 9222379 (Version 1)
Quarter: 2013Q2

REPORT INFORMATION
  Report Type: Spontaneous
  Country: MX (occurrence: MX)
  Receive Date: 20130410
  Receipt Date: 20130410
  Transmission Date: 20140414
  Serious: Yes (Death)
  Sender: FDA-Public Use
  Company Number: MX-AMGEN-MEXSP2013024446

PATIENT
  Age: 97 Year
  Sex: Female

DRUGS (1)
  1. PROLIA [Suspect]
     Indication: PRODUCT USED FOR UNKNOWN INDICATION
     Dosage: 60 MG/ML, UNK
     Route: 058
     Dates: start: 20120903

REACTIONS (3)
  - Lung disorder [Fatal]
  - Cardiac disorder [Fatal]
  - Infarction [Fatal]
